FAERS Safety Report 5647731-3 (Version None)
Quarter: 2008Q1

REPORT INFORMATION
  Report Type: 
  Country: None (occurrence: None)
  Receive Date: 20080303
  Receipt Date: 20080220
  Transmission Date: 20080703
  Serious: Yes (Hospitalization, Disabling)
  Sender: FDA-Public Use
  Company Number: GB-PFIZER INC-2008015494

PATIENT
  Age: 59 Year
  Sex: Female

DRUGS (10)
  1. PREDNISOLONE [Suspect]
     Indication: PSORIATIC ARTHROPATHY
     Route: 048
  2. ETANERCEPT [Suspect]
     Indication: PSORIATIC ARTHROPATHY
     Dosage: DAILY DOSE:25MG
     Route: 058
     Dates: start: 20031201, end: 20060201
  3. ALENDRONIC ACID [Concomitant]
     Dosage: DAILY DOSE:70MG
     Route: 048
  4. AMITRIPTYLINE HCL [Concomitant]
     Dosage: DAILY DOSE:25MG
     Route: 048
  5. RAMIPRIL [Concomitant]
     Dosage: DAILY DOSE:10MG
     Route: 048
  6. CODEINE PHOSPHATE/PARACETAMOL [Concomitant]
  7. LANSOPRAZOLE [Concomitant]
     Dosage: DAILY DOSE:30MG
     Route: 048
  8. MORPHINE SULFATE [Concomitant]
     Dosage: DAILY DOSE:10MG
     Route: 048
  9. PAROXETINE HCL [Concomitant]
     Dosage: DAILY DOSE:20MG
     Route: 048
  10. BENDROFLUMETHIAZIDE [Concomitant]
     Dosage: DAILY DOSE:2.5MG
     Route: 048

REACTIONS (3)
  - HIP ARTHROPLASTY [None]
  - POSTOPERATIVE WOUND INFECTION [None]
  - STAPHYLOCOCCAL INFECTION [None]
